FAERS Safety Report 7590100-X (Version None)
Quarter: 2011Q3

REPORT INFORMATION
  Report Type: 
  Country: None (occurrence: None)
  Receive Date: 20110705
  Receipt Date: 20110624
  Transmission Date: 20111222
  Serious: Yes (Congenital Anomaly)
  Sender: FDA-Public Use
  Company Number: B0728415A

PATIENT
  Sex: Male

DRUGS (3)
  1. RELENZA [Suspect]
     Indication: INFLUENZA
     Dosage: 20MG PER DAY
     Route: 064
     Dates: start: 20101221, end: 20101226
  2. FOLIC ACID [Concomitant]
     Route: 064
  3. FLUARIX [Concomitant]
     Route: 064
     Dates: start: 20110113, end: 20110113

REACTIONS (1)
  - DEAFNESS CONGENITAL [None]
